FAERS Safety Report 6740267-8 (Version None)
Quarter: 2010Q2

REPORT INFORMATION
  Report Type: 
  Country: None (occurrence: None)
  Receive Date: 20100525
  Receipt Date: 20100521
  Transmission Date: 20101027
  Serious: Yes (Death, Hospitalization)
  Sender: FDA-Public Use
  Company Number: ES-MERCK-1005ESP00049

PATIENT
  Age: 68 Year
  Sex: Female

DRUGS (8)
  1. EMEND [Suspect]
     Indication: VOMITING
     Route: 048
     Dates: start: 20100222, end: 20100415
  2. ACETYLCYSTEINE [Suspect]
     Route: 048
     Dates: start: 20100420
  3. BEVACIZUMAB [Suspect]
     Indication: LUNG NEOPLASM MALIGNANT
     Route: 065
     Dates: start: 20100222, end: 20100413
  4. CISPLATIN [Suspect]
     Indication: LUNG NEOPLASM MALIGNANT
     Route: 065
     Dates: start: 20100222, end: 20100413
  5. EBASTINE [Suspect]
     Route: 048
     Dates: start: 20100302
  6. GEMCITABINE HYDROCHLORIDE [Suspect]
     Indication: LUNG NEOPLASM MALIGNANT
     Route: 065
     Dates: start: 20100222, end: 20100413
  7. METOCLOPRAMIDE HYDROCHLORIDE [Suspect]
     Indication: VOMITING
     Route: 048
     Dates: start: 20100222, end: 20100422
  8. OMEPRAZOLE [Suspect]
     Indication: PROPHYLAXIS AGAINST GASTROINTESTINAL ULCER
     Route: 048
     Dates: start: 20100222, end: 20100422

REACTIONS (1)
  - CEREBRAL HAEMORRHAGE [None]
